FAERS Safety Report 8110202-9 (Version None)
Quarter: 2012Q1

REPORT INFORMATION
  Report Type: 
  Country: None (occurrence: None)
  Receive Date: 20120202
  Receipt Date: 20120127
  Transmission Date: 20120608
  Serious: No
  Sender: FDA-Public Use
  Company Number: US-AMGEN-USASP2012005885

PATIENT
  Sex: Male

DRUGS (2)
  1. TREXALL [Concomitant]
     Dosage: UNK
     Dates: start: 20110101
  2. ENBREL [Suspect]
     Indication: JUVENILE ARTHRITIS
     Dosage: 40 MG, QWK
     Dates: start: 20110201

REACTIONS (5)
  - RHINORRHOEA [None]
  - INJECTION SITE PAIN [None]
  - COUGH [None]
  - HEADACHE [None]
  - NASOPHARYNGITIS [None]
